FAERS Safety Report 5988350-9 (Version None)
Quarter: 2008Q4

REPORT INFORMATION
  Report Type: 
  Country: None (occurrence: None)
  Receive Date: 20081204
  Receipt Date: 20081128
  Transmission Date: 20090506
  Serious: Yes (Disabling)
  Sender: FDA-Public Use
  Company Number: OSCN-PR-0812L-0646

PATIENT
  Age: 57 Year
  Sex: Female

DRUGS (2)
  1. OMNISCAN [Suspect]
     Indication: CENTRAL NERVOUS SYSTEM LESION
     Dosage: SINGEL DOSE
     Dates: start: 20051201, end: 20051201
  2. GADOPENTETATE DIMEGLUMNE [Concomitant]

REACTIONS (9)
  - DIALYSIS [None]
  - DISEASE COMPLICATION [None]
  - DISEASE PROGRESSION [None]
  - ERYTHEMA [None]
  - MOBILITY DECREASED [None]
  - NEPHROGENIC SYSTEMIC FIBROSIS [None]
  - OEDEMA [None]
  - PAIN [None]
  - SKIN HYPERPIGMENTATION [None]
